FAERS Safety Report 11634879 (Version 2)
Quarter: 2015Q4

REPORT INFORMATION
  Report Type: Spontaneous
  Country: BR (occurrence: BR)
  Receive Date: 20151015
  Receipt Date: 20151028
  Transmission Date: 20160304
  Serious: Yes (Hospitalization)
  Sender: FDA-Public Use
  Company Number: PHHY2015BR124310

PATIENT
  Sex: Female

DRUGS (2)
  1. VOLTAREN [Suspect]
     Active Substance: DICLOFENAC SODIUM
     Indication: RENAL PAIN
     Dosage: 2 DF, QD (FOR 3 TO 5 DAYS; USING ONLY WHEN EXPERIENCING PAIN)
     Route: 048
  2. VITAMIN B6 [Suspect]
     Active Substance: PYRIDOXINE HYDROCHLORIDE
     Indication: PRODUCT USED FOR UNKNOWN INDICATION
     Dosage: UNK
     Route: 065

REACTIONS (4)
  - Renal pain [Recovering/Resolving]
  - Kidney infection [Recovering/Resolving]
  - Wrong drug administered [Unknown]
  - Off label use [Unknown]
